FAERS Safety Report 25630769 (Version 2)
Quarter: 2025Q4

REPORT INFORMATION
  Report Type: Report from Study
  Country: US (occurrence: US)
  Receive Date: 20250801
  Receipt Date: 20251014
  Transmission Date: 20260118
  Serious: Yes (Other)
  Sender: AVADEL CNS PHARMACEUTICALS, LLC
  Company Number: US-AVADEL CNS PHARMACEUTICALS, LLC-2025AVA01861

PATIENT
  Age: 36 Year
  Sex: Female
  Weight: 76.19 kg

DRUGS (34)
  1. LUMRYZ [Suspect]
     Active Substance: SODIUM OXYBATE
     Indication: Narcolepsy
     Dosage: 9 G (2 X 4.5 G DOSES), ONCE (AROUND MIDNIGHT)
     Route: 048
     Dates: start: 20250717, end: 20250717
  2. ADDERALL [Concomitant]
     Active Substance: AMPHETAMINE ASPARTATE\AMPHETAMINE SULFATE\DEXTROAMPHETAMINE SACCHARATE\DEXTROAMPHETAMINE SULFATE
     Dosage: 10 MG, 4X/DAY AS NEEDED
     Route: 048
  3. ABILIFY [Concomitant]
     Active Substance: ARIPIPRAZOLE
     Dosage: 2 MG, 1X/DAY
     Route: 048
  4. EXCEDRIN EXTRA STRENGTH [Concomitant]
     Active Substance: ACETAMINOPHEN\ASPIRIN\CAFFEINE
     Dosage: UNK
     Route: 048
  5. AZELASTINE HYDROCHLORIDE [Concomitant]
     Active Substance: AZELASTINE HYDROCHLORIDE
     Dosage: UNK
     Route: 045
  6. PEPTO-BISMOL [Concomitant]
     Active Substance: BISMUTH SUBSALICYLATE
     Dosage: 30 ML, EVERY 6 HOURS, AS NEEDED
     Route: 048
  7. CELEBREX [Concomitant]
     Active Substance: CELECOXIB
     Dosage: 200 MG, 2X/DAY, AS NEEDED
     Route: 048
  8. ZYRTEC [Concomitant]
     Active Substance: CETIRIZINE HYDROCHLORIDE
     Dosage: 10 MG, 1X/DAY
     Route: 048
  9. GASTROCROM [Concomitant]
     Active Substance: CROMOLYN SODIUM
     Dosage: 200 MG, 4X/DAY
     Route: 048
  10. Nasochrom [Concomitant]
     Dosage: 10.4 MG (1 SPRAY IN EACH NARE), 2X/DAY, AS NEEDED
     Route: 045
  11. FLECTOR [Concomitant]
     Active Substance: DICLOFENAC EPOLAMINE
     Dosage: UNK, APPLIED TO SKIN, ONCE (PATCH)
     Route: 062
  12. DRISDOL [Concomitant]
     Active Substance: ERGOCALCIFEROL
     Dosage: 50000 IU, 1X/WEEK (ON SUNDAY)
     Route: 048
  13. PEPCID [Concomitant]
     Active Substance: FAMOTIDINE
     Dosage: 20 MG, 2X/DAY
     Route: 048
  14. FLONASE [Concomitant]
     Active Substance: FLUTICASONE PROPIONATE
     Dosage: 100 ?G (1 SPRAY IN EACH NARE), 2X/DAY
     Route: 045
  15. EMGALITY [Concomitant]
     Active Substance: GALCANEZUMAB-GNLM
     Dosage: 120 MILLIGRAM PER MILLILITRE, 1X/MONTH
  16. GUAIFENESIN [Concomitant]
     Active Substance: GUAIFENESIN
     Dosage: 400 MG, 4X/DAY, AS NEEDED
     Route: 048
  17. MOTRIN [Concomitant]
     Active Substance: IBUPROFEN
     Dosage: 200 MG, EVERY 6 HOURS, AS NEEDED
     Route: 048
  18. XIIDRA [Concomitant]
     Active Substance: LIFITEGRAST
     Dosage: 2 DROPS (1 DROP TO EACH EYE), 2X/DAY
     Route: 047
  19. IMODIUM [Concomitant]
     Active Substance: LOPERAMIDE HYDROCHLORIDE
     Dosage: 2 MG, 4X/DAY, AS NEEDED
     Route: 048
  20. MAGNESIUM GLYCINATE [Concomitant]
     Active Substance: MAGNESIUM GLYCINATE
     Dosage: 200 MG, 1X/DAY
     Route: 048
  21. METHYLCOBALAMIN [Concomitant]
     Active Substance: METHYLCOBALAMIN
     Dosage: 1 MG, 1X/WEEK
  22. Multivitamin-Minerals [Concomitant]
     Dosage: 1 TABLETS, 1X/DAY
     Route: 048
  23. PROCARDIA [Concomitant]
     Active Substance: NIFEDIPINE
     Dosage: 10 MG, EVERY 8 HOURS, AS NEEDED
     Route: 048
  24. PRILOSEC [Concomitant]
     Active Substance: OMEPRAZOLE MAGNESIUM
     Dosage: 40 MG, 1X/DAY, BEFORE BREAKFAST
     Route: 048
  25. ZOFRAN [Concomitant]
     Active Substance: ONDANSETRON HYDROCHLORIDE
     Dosage: 8 MG, EVERY 8 HOURS, AS NEEDED
     Route: 048
  26. AFRIN [Concomitant]
     Active Substance: OXYMETAZOLINE HYDROCHLORIDE
     Dosage: 2 SPRAYS, EVERY 12 HOURS, AS NEEDED
     Route: 045
  27. GLYCOLAX [Concomitant]
     Active Substance: POLYETHYLENE GLYCOL 3350
     Dosage: 17 G, 1X/DAY
     Route: 048
  28. LYRICA [Concomitant]
     Active Substance: PREGABALIN
     Dosage: 100 MG, 1X/DAY
     Route: 048
  29. INDERAL [Concomitant]
     Active Substance: PROPRANOLOL HYDROCHLORIDE
     Dosage: 10 MG, 3X/DAY
     Route: 048
  30. MOTEGRITY [Concomitant]
     Active Substance: PRUCALOPRIDE SUCCINATE
     Dosage: 2 MG, 1X/DAY
     Route: 048
  31. VITAMIN B2 [Concomitant]
     Active Substance: RIBOFLAVIN
     Dosage: 25 MG, 2X/DAY
     Route: 048
  32. SIMETHICONE (DIMETHICONE) [Concomitant]
     Active Substance: DIMETHICONE
     Dosage: 80 MG, 4X/DAY, AFTER MEALS AND AT BEDTIME AS NEEDED
     Route: 048
  33. IMITREX [Concomitant]
     Active Substance: SUMATRIPTAN SUCCINATE
     Dosage: 100 MG AT HEADACHE ONSET; MAY REPEAT ONCE IN 2 HOURS
  34. IBSRELA [Concomitant]
     Active Substance: TENAPANOR HYDROCHLORIDE
     Dosage: 50 MG, 2X/DAY, IMMEDIATELY BEFORE MEALS
     Route: 048

REACTIONS (3)
  - Sedation [Recovered/Resolved]
  - Unresponsive to stimuli [Recovered/Resolved]
  - Incorrect dose administered [Recovered/Resolved]

NARRATIVE: CASE EVENT DATE: 20250717
